FAERS Safety Report 7483611-9 (Version None)
Quarter: 2011Q2

REPORT INFORMATION
  Report Type: 
  Country: None (occurrence: None)
  Receive Date: 20110517
  Receipt Date: 20110511
  Transmission Date: 20111010
  Serious: Yes (Other)
  Sender: FDA-Public Use
  Company Number: US-PFIZER INC-2007036388

PATIENT
  Sex: Male

DRUGS (5)
  1. LORCET-HD [Concomitant]
     Indication: BACK PAIN
     Dosage: 10/650 MG EVERY 2 HOURS
     Dates: start: 19900101
  2. LORCET-HD [Concomitant]
     Indication: NECK PAIN
  3. NEURONTIN [Suspect]
     Indication: NECK PAIN
     Dosage: 300 MG, 3X/DAY
     Route: 048
     Dates: start: 20020901
  4. NEURONTIN [Suspect]
     Indication: RADICULOPATHY
  5. NEURONTIN [Suspect]
     Indication: BACK PAIN
     Dosage: 300MG AND 600MG EVERY 4 HOURS
     Dates: start: 20020926

REACTIONS (10)
  - SUICIDE ATTEMPT [None]
  - AMNESIA [None]
  - VOMITING [None]
  - THINKING ABNORMAL [None]
  - DRUG INEFFECTIVE FOR UNAPPROVED INDICATION [None]
  - AGGRESSION [None]
  - INTENTIONAL OVERDOSE [None]
  - DEPRESSION [None]
  - HYPERTENSION [None]
  - MALAISE [None]
